FAERS Safety Report 10375800 (Version 1)
Quarter: 2014Q1

REPORT INFORMATION
  Report Type: Spontaneous
  Country: US (occurrence: None)
  Receive Date: 20140306
  Receipt Date: 20140306
  Transmission Date: 20141002
  Serious: Yes (Other)
  Sender: FDA-Public Use
  Company Number: 163-21880-13110862

PATIENT
  Age: 75 Year
  Sex: Female
  Weight: 58.06 kg

DRUGS (15)
  1. REVLIMID (LENALIDOMIDE) (10 MILLIGRAM, CAPSULES) [Suspect]
     Indication: PLASMA CELL MYELOMA
     Dosage: 10MG, 21 IN 28 D, PO
     Route: 048
     Dates: start: 20130615
  2. AMLODIPINE [Concomitant]
  3. ASA (ACETYLSALICYLIC ACID) [Concomitant]
  4. COREG (CARVEDILOL) [Concomitant]
  5. GABAPENTIN [Concomitant]
  6. HCTZ (HYDROCHLOROTHIAZIDE) [Concomitant]
  7. ZOFRAN (ONDANSETRON HYDROCHLORIDE) [Concomitant]
  8. NEPHROCAPS [Concomitant]
  9. CALCIUM ACETATE [Concomitant]
  10. ACYCLOVIR (ACICLOVIR) [Concomitant]
  11. DEXAMETHASONE [Concomitant]
  12. MEGACE (MEGESTROL ACETATE) [Concomitant]
  13. ALOXI (PALONOSETRON HYDROCHLORIDE) [Concomitant]
  14. ENSURE [Concomitant]
  15. HYDRATION (I.V. SOLUTIONS) [Concomitant]

REACTIONS (6)
  - Deep vein thrombosis [None]
  - Adverse drug reaction [None]
  - Diarrhoea [None]
  - Anaemia [None]
  - Nausea [None]
  - Dysgeusia [None]
